FAERS Safety Report 4839661-1 (Version None)
Quarter: 2005Q4

REPORT INFORMATION
  Report Type: 
  Country: None (occurrence: None)
  Receive Date: 20051129
  Receipt Date: 20050512
  Transmission Date: 20060501
  Serious: No
  Sender: FDA-Public Use
  Company Number: US-GLAXOSMITHKLINE-A0558338A

PATIENT
  Age: 46 Year
  Sex: Female

DRUGS (4)
  1. WELLBUTRIN SR [Suspect]
     Indication: DRUG USE FOR UNKNOWN INDICATION
     Dosage: 150MG UNKNOWN
     Route: 048
  2. WELLBUTRIN XL [Suspect]
     Indication: MOOD SWINGS
     Dosage: 150MG PER DAY
     Route: 048
  3. LEVOXYL [Concomitant]
  4. ORAL CONTRACEPTIVE [Concomitant]

REACTIONS (2)
  - ALOPECIA [None]
  - INSOMNIA [None]
